FAERS Safety Report 4560565-6 (Version None)
Quarter: 2005Q1

REPORT INFORMATION
  Report Type: 
  Country: None (occurrence: None)
  Receive Date: 20050125
  Receipt Date: 20050113
  Transmission Date: 20050727
  Serious: Yes (Hospitalization)
  Sender: FDA-Public Use
  Company Number: IT-BRISTOL-MYERS SQUIBB COMPANY-12829313

PATIENT
  Age: 68 Year
  Sex: Male

DRUGS (2)
  1. CETUXIMAB [Suspect]
     Indication: COLORECTAL CANCER
     Dosage: 04-JAN-05, MOST RECENT INFUSION.  9TH INFUSION SO FAR.
     Route: 042
     Dates: start: 20041109
  2. IRINOTECAN HCL [Suspect]
     Indication: COLORECTAL CANCER
     Dosage: 04-JAN-05, MOST RECENT INFUSION.  5TH INFUSION SO FAR.
     Route: 042
     Dates: start: 20041109

REACTIONS (4)
  - MYOCARDIAL ISCHAEMIA [None]
  - RENAL FAILURE [None]
  - RESPIRATORY FAILURE [None]
  - SEPTIC SHOCK [None]
